FAERS Safety Report 19571268 (Version 1)
Quarter: 2021Q3

REPORT INFORMATION
  Report Type: Spontaneous
  Country: AT (occurrence: AT)
  Receive Date: 20210715
  Receipt Date: 20210715
  Transmission Date: 20211014
  Serious: Yes (Other)
  Sender: FDA-Public Use
  Company Number: NVSC2021AT151914

PATIENT
  Age: 23 Year
  Sex: Female

DRUGS (1)
  1. OSPAMOX [Suspect]
     Active Substance: AMOXICILLIN
     Indication: PRODUCT USED FOR UNKNOWN INDICATION
     Dosage: UNK (GEMAB FACHINFORMATION)
     Route: 048
     Dates: start: 20201201, end: 20201201

REACTIONS (2)
  - Type IV hypersensitivity reaction [Unknown]
  - Rash [Unknown]

NARRATIVE: CASE EVENT DATE: 20201201
